FAERS Safety Report 18518842 (Version 1)
Quarter: 2020Q4

REPORT INFORMATION
  Report Type: Spontaneous
  Country: US (occurrence: US)
  Receive Date: 20201118
  Receipt Date: 20201118
  Transmission Date: 20210114
  Serious: Yes (Disabling, Other)
  Sender: FDA-Public Use
  Company Number: US-PURDUE-USA-2020-0176556

PATIENT

DRUGS (1)
  1. OXYCONTIN [Suspect]
     Active Substance: OXYCODONE HYDROCHLORIDE
     Indication: PAIN
     Route: 048

REACTIONS (8)
  - Amnesia [Unknown]
  - Drug withdrawal syndrome [Unknown]
  - Disability [Unknown]
  - Tooth injury [Unknown]
  - General physical health deterioration [Unknown]
  - Mental disorder [Unknown]
  - Drug dependence [Unknown]
  - Degenerative bone disease [Unknown]
